FAERS Safety Report 19289096 (Version 1)
Quarter: 2021Q2

REPORT INFORMATION
  Report Type: Spontaneous
  Country: IT (occurrence: IT)
  Receive Date: 20210521
  Receipt Date: 20210521
  Transmission Date: 20210717
  Serious: Yes (Other)
  Sender: FDA-Public Use
  Company Number: NVSC2021IT111476

PATIENT
  Sex: Female

DRUGS (10)
  1. PERAMPANEL [Suspect]
     Active Substance: PERAMPANEL
     Indication: EPILEPTIC ENCEPHALOPATHY
     Dosage: 6 MILLIGRAM DAILY; LAST DOSAGE (OFF?LABEL)
     Route: 065
  2. PERAMPANEL [Suspect]
     Active Substance: PERAMPANEL
     Dosage: 5 MILLIGRAM DAILY; INCREASED TO 5MG/DAY DUE TO MILD RELAPSES
     Route: 065
  3. LAMOTRIGINE. [Suspect]
     Active Substance: LAMOTRIGINE
     Indication: GENERALISED TONIC-CLONIC SEIZURE
     Dosage: UNK
     Route: 065
  4. PERAMPANEL [Suspect]
     Active Substance: PERAMPANEL
     Dosage: 2 MILLIGRAM DAILY; TITRATION STARTED AT THE DOSE OF 2MG/DAY
     Route: 065
  5. CARBAMAZEPINE. [Suspect]
     Active Substance: CARBAMAZEPINE
     Indication: GENERALISED TONIC-CLONIC SEIZURE
     Dosage: UNK
     Route: 065
  6. LEVETIRACETAM. [Suspect]
     Active Substance: LEVETIRACETAM
     Indication: GENERALISED TONIC-CLONIC SEIZURE
     Dosage: UNK
     Route: 065
  7. VALPROIC ACID. [Suspect]
     Active Substance: VALPROIC ACID
     Indication: GENERALISED TONIC-CLONIC SEIZURE
     Dosage: 30 MG/KG DAILY; INITIAL DOSE WAS NOT STATED FOR VALPROATE WHEN GIVEN WITH OTHER ANTIEPILEPTIC DRUGS
     Route: 065
  8. PERAMPANEL [Suspect]
     Active Substance: PERAMPANEL
     Dosage: 4 MILLIGRAM DAILY; UPTITRATED IN SECOND AND THIRD MONTH
     Route: 065
  9. NITRAZEPAM [Concomitant]
     Active Substance: NITRAZEPAM
     Indication: GENERALISED TONIC-CLONIC SEIZURE
     Dosage: 5 MILLIGRAM DAILY; ALONG WITH PERAMPANEL
     Route: 065
  10. HYDROCORTISONE. [Suspect]
     Active Substance: HYDROCORTISONE
     Indication: GENERALISED TONIC-CLONIC SEIZURE
     Dosage: UNK
     Route: 065

REACTIONS (2)
  - Drug withdrawal convulsions [Unknown]
  - Drug ineffective [Unknown]
